FAERS Safety Report 8767070 (Version 1)
Quarter: 2012Q4

REPORT INFORMATION
  Report Type: 
  Country: US (occurrence: US)
  Receive Date: 20120903
  Receipt Date: 20120903
  Transmission Date: 20130627
  Serious: No
  Sender: FDA-Public Use
  Company Number: US-ELI_LILLY_AND_COMPANY-US201208007862

PATIENT
  Age: 42 Year
  Sex: Male

DRUGS (5)
  1. CYMBALTA [Suspect]
     Indication: DEPRESSION
     Dosage: 30 mg, qid
  2. CIALIS [Suspect]
     Indication: ERECTILE DYSFUNCTION
     Dosage: 10 mg, unknown
     Dates: start: 2009
  3. ADDERALL [Concomitant]
  4. CLONAZEPAM [Concomitant]
  5. DIAZEPAM [Concomitant]

REACTIONS (15)
  - Visual acuity reduced [Unknown]
  - Erectile dysfunction [Unknown]
  - Libido decreased [Unknown]
  - Drug ineffective [Unknown]
  - Drug withdrawal syndrome [Unknown]
  - Vomiting [Unknown]
  - Feeling cold [Unknown]
  - Confusional state [Unknown]
  - Headache [Unknown]
  - Road traffic accident [Unknown]
  - Back injury [Unknown]
  - Neck injury [Unknown]
  - Post-traumatic neck syndrome [Unknown]
  - Sleep disorder [Unknown]
  - Drug dose omission [Unknown]
